FAERS Safety Report 10302899 (Version 3)
Quarter: 2021Q3

REPORT INFORMATION
  Report Type: Spontaneous
  Country: US (occurrence: US)
  Receive Date: 20140714
  Receipt Date: 20210709
  Transmission Date: 20211014
  Serious: No
  Sender: FDA-Public Use
  Company Number: US-ASTELLAS-2014US003702

PATIENT
  Sex: Female

DRUGS (2)
  1. MYRBETRIQ [Suspect]
     Active Substance: MIRABEGRON
     Indication: BLADDER SPASM
     Route: 048
  2. MYRBETRIQ [Suspect]
     Active Substance: MIRABEGRON
     Indication: BLADDER SPASM
     Route: 048
     Dates: start: 201309

REACTIONS (15)
  - Arthralgia [Recovering/Resolving]
  - Fatigue [Recovering/Resolving]
  - Dry eye [Unknown]
  - Headache [Unknown]
  - Drug ineffective for unapproved indication [Unknown]
  - Dysuria [Not Recovered/Not Resolved]
  - Condition aggravated [Not Recovered/Not Resolved]
  - Vision blurred [Unknown]
  - Vulvovaginal burning sensation [Not Recovered/Not Resolved]
  - Dyschezia [Not Recovered/Not Resolved]
  - Sinusitis [Unknown]
  - Myalgia [Recovering/Resolving]
  - Urinary tract infection [Unknown]
  - Rash [Unknown]
  - Back pain [Not Recovered/Not Resolved]
